FAERS Safety Report 8505387-6 (Version None)
Quarter: 2012Q3

REPORT INFORMATION
  Report Type: 
  Country: None (occurrence: None)
  Receive Date: 20120712
  Receipt Date: 20120705
  Transmission Date: 20120928
  Serious: Yes (Other)
  Sender: FDA-Public Use
  Company Number: CA-UCBSA-033147

PATIENT
  Age: 40 Year
  Sex: Female

DRUGS (6)
  1. LEVONORGESTREL + ETHINYL ESTRADIOL [Suspect]
     Dosage: INCREASED IN ONE AND THREE QUARTERS OF A TABLET
     Dates: start: 20110301
  2. TOPAMAX [Suspect]
     Route: 048
  3. MYLAN [Suspect]
     Indication: EPILEPSY
     Route: 048
     Dates: start: 19960101
  4. KEPPRA [Suspect]
     Indication: EPILEPSY
     Dates: start: 20050101
  5. LEVONORGESTREL + ETHINYL ESTRADIOL [Suspect]
     Indication: EPILEPSY
     Dates: start: 20110301, end: 20110301
  6. CITALOPRAM HYDROBROMIDE [Suspect]
     Dates: start: 20030101

REACTIONS (4)
  - PETIT MAL EPILEPSY [None]
  - DIZZINESS [None]
  - VAGINAL DISCHARGE [None]
  - FEELING HOT [None]
